FAERS Safety Report 22090263 (Version 1)
Quarter: 2023Q1

REPORT INFORMATION
  Report Type: Spontaneous
  Country: US (occurrence: None)
  Receive Date: 20230313
  Receipt Date: 20230313
  Transmission Date: 20230418
  Serious: Yes (Hospitalization)
  Sender: FDA-Public Use
  Company Number: None

PATIENT
  Age: 79 Year
  Sex: Male

DRUGS (1)
  1. LENALIDOMIDE [Suspect]
     Active Substance: LENALIDOMIDE
     Dosage: 20MG OTHER ORAL
     Route: 048

REACTIONS (3)
  - Pneumonia aspiration [None]
  - Oesophageal food impaction [None]
  - Therapy interrupted [None]

NARRATIVE: CASE EVENT DATE: 20230303
